FAERS Safety Report 7352305-2 (Version None)
Quarter: 2011Q1

REPORT INFORMATION
  Report Type: 
  Country: None (occurrence: None)
  Receive Date: 20110315
  Receipt Date: 20110311
  Transmission Date: 20110831
  Serious: Yes (Life-Threatening, Hospitalization)
  Sender: FDA-Public Use
  Company Number: FR-SANOFI-AVENTIS-2011SA014838

PATIENT
  Age: 57 Year
  Sex: Female

DRUGS (8)
  1. ENALAPRIL MALEATE [Concomitant]
  2. KETEK [Suspect]
     Indication: BRONCHITIS
     Route: 048
     Dates: start: 20110104, end: 20110109
  3. ALLOPURINOL [Interacting]
     Route: 048
     Dates: start: 20101110, end: 20110111
  4. TAHOR [Concomitant]
     Dates: end: 20110101
  5. IMUREL [Interacting]
     Route: 048
     Dates: end: 20110111
  6. FERROUS SULFATE TAB [Concomitant]
  7. NEORAL [Concomitant]
  8. CORTANCYL [Concomitant]

REACTIONS (5)
  - DRUG INTERACTION [None]
  - ASTHENIA [None]
  - DYSPNOEA [None]
  - PANCYTOPENIA [None]
  - CONDITION AGGRAVATED [None]
